FAERS Safety Report 8858974 (Version 1)
Quarter: 2012Q4

REPORT INFORMATION
  Report Type: 
  Country: FR (occurrence: FR)
  Receive Date: 20121024
  Receipt Date: 20121024
  Transmission Date: 20130627
  Serious: Yes (Hospitalization, Other)
  Sender: FDA-Public Use
  Company Number: FR-009507513-1210FRA008435

PATIENT
  Age: 65 Year
  Sex: Male

DRUGS (3)
  1. TIENAM 500MG/500MG, POUDRE POUR PERFUSION [Suspect]
     Indication: OSTEOMYELITIS
     Dosage: 1 g, tid
     Route: 042
     Dates: start: 20120720, end: 20120807
  2. TIENAM 500MG/500MG, POUDRE POUR PERFUSION [Suspect]
     Dosage: 1 g, tid
     Route: 042
     Dates: start: 20120809, end: 20120918
  3. TAZOCILLINE [Concomitant]
     Indication: OSTEOMYELITIS
     Dosage: 2 g, bid
     Route: 042
     Dates: start: 20120808, end: 20120808

REACTIONS (2)
  - Full blood count abnormal [Recovered/Resolved]
  - Pancytopenia [Recovered/Resolved]
